FAERS Safety Report 4535403-8 (Version None)
Quarter: 2004Q4

REPORT INFORMATION
  Report Type: 
  Country: None (occurrence: None)
  Receive Date: 20041214
  Receipt Date: 20040802
  Transmission Date: 20050328
  Serious: No
  Sender: FDA-Public Use
  Company Number: USA040874232

PATIENT
  Age: 62 Year
  Sex: Male
  Weight: 65 kg

DRUGS (1)
  1. CIALIS [Suspect]
     Dosage: 10 MG AS NEEDED

REACTIONS (2)
  - HICCUPS [None]
  - THERAPEUTIC RESPONSE DECREASED [None]
